FAERS Safety Report 8537166-8 (Version None)
Quarter: 2012Q3

REPORT INFORMATION
  Report Type: 
  Country: None (occurrence: None)
  Receive Date: 20120725
  Receipt Date: 20120720
  Transmission Date: 20120928
  Serious: Yes (Other)
  Sender: FDA-Public Use
  Company Number: US-ABBOTT-12P-163-0955039-00

PATIENT
  Sex: Female

DRUGS (4)
  1. FOLIC ACID [Concomitant]
     Indication: PROPHYLAXIS
     Route: 048
     Dates: end: 20120409
  2. FOLIC ACID [Concomitant]
     Indication: ADVERSE DRUG REACTION
  3. METHOTREXATE [Concomitant]
     Indication: RHEUMATOID ARTHRITIS
     Route: 048
     Dates: end: 20120501
  4. HUMIRA [Suspect]
     Indication: RHEUMATOID ARTHRITIS
     Route: 058
     Dates: start: 20070101, end: 20120501

REACTIONS (3)
  - POLYP [None]
  - COLON CANCER [None]
  - METASTASES TO LYMPH NODES [None]
